FAERS Safety Report 5136299-6 (Version None)
Quarter: 2006Q4

REPORT INFORMATION
  Report Type: 
  Country: None (occurrence: None)
  Receive Date: 20061027
  Receipt Date: 20060203
  Transmission Date: 20070319
  Serious: Yes (Other)
  Sender: FDA-Public Use
  Company Number: FR-GLAXOSMITHKLINE-B0409611A

PATIENT
  Age: 71 Year
  Sex: Male
  Weight: 72 kg

DRUGS (9)
  1. AVANDAMET [Suspect]
     Indication: DIABETES MELLITUS NON-INSULIN-DEPENDENT
     Route: 048
     Dates: start: 20051010
  2. AVANDIA [Suspect]
     Indication: DIABETES MELLITUS NON-INSULIN-DEPENDENT
     Dosage: 4MG IN THE MORNING
     Route: 048
     Dates: start: 20060815
  3. METFORMIN HCL [Suspect]
     Indication: DIABETES MELLITUS NON-INSULIN-DEPENDENT
     Dosage: 500MG IN THE MORNING
     Route: 048
     Dates: start: 20060815
  4. BISOPROLOL FUMARATE [Concomitant]
     Dosage: 10MG PER DAY
     Route: 048
  5. PLAVIX [Concomitant]
     Dosage: 1TAB PER DAY
     Route: 048
  6. EZETROL [Concomitant]
     Dosage: 10MG PER DAY
     Route: 048
  7. TAHOR [Concomitant]
     Dosage: 10MG PER DAY
     Route: 048
  8. TORENTAL 400 [Concomitant]
     Dosage: 2TAB PER DAY
     Route: 048
  9. ALLOPURINOL [Concomitant]
     Indication: GOUT
     Dosage: 200MG PER DAY
     Route: 048
     Dates: start: 19930101

REACTIONS (3)
  - ABDOMINAL PAIN [None]
  - DIARRHOEA [None]
  - NORMOCHROMIC NORMOCYTIC ANAEMIA [None]
